FAERS Safety Report 11044780 (Version 4)
Quarter: 2016Q2

REPORT INFORMATION
  Report Type: Spontaneous
  Country: US (occurrence: US)
  Receive Date: 20150417
  Receipt Date: 20160512
  Transmission Date: 20160815
  Serious: Yes (Other)
  Sender: FDA-Public Use
  Company Number: US-UCBSA-2015007506

PATIENT
  Age: 65 Year
  Sex: Male
  Weight: 78 kg

DRUGS (9)
  1. DILTIAZEM HCL [Concomitant]
     Active Substance: DILTIAZEM HYDROCHLORIDE
     Indication: GASTROINTESTINAL DISORDER
     Dosage: 120 MG, ONCE DAILY (QD)  STARTED LONG TIME AGO
     Route: 048
  2. LOMOTIL [Concomitant]
     Active Substance: ATROPINE SULFATE\DIPHENOXYLATE HYDROCHLORIDE
     Indication: CROHN^S DISEASE
     Dosage: 2.5, 2 TABLETS 4 TIMES A DAY AS NEEDED
     Route: 048
  3. PROTONIX [Concomitant]
     Active Substance: PANTOPRAZOLE SODIUM
     Indication: GASTROOESOPHAGEAL REFLUX DISEASE
     Dosage: 40 MG, ONCE DAILY (QD)
     Route: 048
  4. XALATAN [Concomitant]
     Active Substance: LATANOPROST
     Indication: OPTIC NERVE DISORDER
     Dosage: 005 ONE DROP EACH EYE AT NIGHT
  5. VITAMIN B12 [Concomitant]
     Active Substance: CYANOCOBALAMIN
     Indication: PRODUCT USED FOR UNKNOWN INDICATION
     Dosage: 1 MI MONTHLY (QM)
     Route: 030
  6. FLUOXETINE [Concomitant]
     Active Substance: FLUOXETINE HYDROCHLORIDE
     Indication: PANIC ATTACK
     Dosage: ONCE A DAY, STARTED MORE THAN 2 YEARS AGO
     Route: 048
  7. CIMZIA [Suspect]
     Active Substance: CERTOLIZUMAB PEGOL
     Indication: RHEUMATOID ARTHRITIS
     Dosage: 400 MG, EV 2 WEEKS(QOW)
     Route: 058
     Dates: start: 20140206, end: 2014
  8. CAPTOPRIL. [Concomitant]
     Active Substance: CAPTOPRIL
     Indication: HYPERTENSION
     Dosage: 50 MG, 3X/DAY (TID)
     Route: 048
  9. CIMZIA [Suspect]
     Active Substance: CERTOLIZUMAB PEGOL
     Dosage: 400 MG, MONTHLY (QM) EXP DATE: 30-SEP-2015
     Route: 058
     Dates: start: 2014, end: 20141117

REACTIONS (10)
  - Psoriasis [Recovered/Resolved]
  - Paraesthesia [Recovered/Resolved]
  - Hepatitis [Unknown]
  - Hot flush [Recovered/Resolved]
  - Hypoaesthesia [Unknown]
  - Muscle spasms [Recovering/Resolving]
  - Influenza like illness [Recovered/Resolved]
  - Myalgia [Unknown]
  - Clostridium difficile infection [Recovering/Resolving]
  - Sinus congestion [Recovered/Resolved]

NARRATIVE: CASE EVENT DATE: 201402
